FAERS Safety Report 23142712 (Version 2)
Quarter: 2023Q4

REPORT INFORMATION
  Report Type: Spontaneous
  Country: FR (occurrence: FR)
  Receive Date: 20231103
  Receipt Date: 20231122
  Transmission Date: 20240109
  Serious: Yes (Death)
  Sender: FDA-Public Use
  Company Number: None

PATIENT
  Age: 81 Year
  Sex: Male

DRUGS (3)
  1. TOCILIZUMAB [Suspect]
     Active Substance: TOCILIZUMAB
     Indication: Product used for unknown indication
     Dosage: ROACTEMRA 20 MG/ML, CONCENTRATE FOR SOLUTION FOR INFUSION
     Route: 042
     Dates: start: 20231006, end: 20231006
  2. ENOXAPARIN SODIUM [Suspect]
     Active Substance: ENOXAPARIN SODIUM
     Indication: Product used for unknown indication
     Route: 065
     Dates: start: 20230915, end: 20231010
  3. AMIODARONE [Concomitant]
     Active Substance: AMIODARONE
     Dates: start: 20230919, end: 20230928

REACTIONS (4)
  - Cerebral haematoma [Fatal]
  - Rectal haemorrhage [Fatal]
  - Haemorrhagic stroke [Fatal]
  - Epistaxis [Fatal]

NARRATIVE: CASE EVENT DATE: 20231009
